FAERS Safety Report 17438080 (Version 2)
Quarter: 2020Q2

REPORT INFORMATION
  Report Type: Spontaneous
  Country: US (occurrence: US)
  Receive Date: 20200220
  Receipt Date: 20200616
  Transmission Date: 20200713
  Serious: No
  Sender: FDA-Public Use
  Company Number: US-TEVA-2020-US-1186493

PATIENT
  Age: 14 Year
  Sex: Female
  Weight: 54 kg

DRUGS (1)
  1. CLARAVIS [Suspect]
     Active Substance: ISOTRETINOIN
     Indication: ACNE
     Dosage: ALTERNATING DOSES OF 40 MG AND 80 MG A DAY
     Route: 065

REACTIONS (10)
  - Hot flush [Recovering/Resolving]
  - Infection [Recovering/Resolving]
  - Dry skin [Unknown]
  - Breast disorder [Recovering/Resolving]
  - Erythema [Recovering/Resolving]
  - Breast mass [Unknown]
  - Lip dry [Unknown]
  - Adverse drug reaction [Unknown]
  - Product dose omission [Unknown]
  - Swelling [Recovering/Resolving]

NARRATIVE: CASE EVENT DATE: 20200207
